FAERS Safety Report 23626416 (Version 1)
Quarter: 2024Q1

REPORT INFORMATION
  Report Type: Spontaneous
  Country: US (occurrence: None)
  Receive Date: 20240312
  Receipt Date: 20240312
  Transmission Date: 20240410
  Serious: Yes (Life-Threatening, Other)
  Sender: FDA-Public Use
  Company Number: None

PATIENT
  Age: 30 Year
  Sex: Female
  Weight: 81.6 kg

DRUGS (3)
  1. BUPROPION HYDROCHLORIDE XL [Suspect]
     Active Substance: BUPROPION HYDROCHLORIDE
     Indication: Depression
     Dosage: FREQUENCY : DAILY;?
     Route: 048
  2. SUMATRIPTAN [Concomitant]
     Active Substance: SUMATRIPTAN
     Dates: start: 20230710
  3. Marlissa-28 [Concomitant]
     Dates: start: 20230330

REACTIONS (3)
  - Syncope [None]
  - Seizure [None]
  - Vomiting [None]

NARRATIVE: CASE EVENT DATE: 20240312
